FAERS Safety Report 12216374 (Version 5)
Quarter: 2016Q3

REPORT INFORMATION
  Report Type: Spontaneous
  Country: US (occurrence: US)
  Receive Date: 20160329
  Receipt Date: 20160713
  Transmission Date: 20161109
  Serious: No
  Sender: FDA-Public Use
  Company Number: US-009507513-1603USA011556

PATIENT
  Sex: Female

DRUGS (1)
  1. NEXPLANON [Suspect]
     Active Substance: ETONOGESTREL
     Indication: CONTRACEPTION
     Dosage: 68 MG FREQUENCY: UNSPECIFIED BY REPORTER
     Route: 059
     Dates: start: 20160311

REACTIONS (4)
  - Device expulsion [Not Recovered/Not Resolved]
  - Product quality issue [Unknown]
  - Implant site swelling [Unknown]
  - Implant site erythema [Unknown]

NARRATIVE: CASE EVENT DATE: 2016
